FAERS Safety Report 19355146 (Version 5)
Quarter: 2022Q1

REPORT INFORMATION
  Report Type: Report from Study
  Country: JP (occurrence: JP)
  Receive Date: 20210602
  Receipt Date: 20220120
  Transmission Date: 20220423
  Serious: Yes (Death, Hospitalization)
  Sender: FDA-Public Use
  Company Number: JP-CELLTRION INC.-2021JP007278

PATIENT

DRUGS (21)
  1. INVESTIGATIONAL BIOSIMILARS [Suspect]
     Active Substance: INVESTIGATIONAL BIOSIMILARS
     Indication: HER2 positive gastric cancer
     Dosage: 360 MILLIGRAM, QD (EVERY ADMINISTRATION)
     Route: 041
     Dates: start: 20191023, end: 20191023
  2. INVESTIGATIONAL BIOSIMILARS [Suspect]
     Active Substance: INVESTIGATIONAL BIOSIMILARS
     Dosage: 360 MILLIGRAM, QD (EVERY ADMINISTRATION)
     Route: 041
     Dates: start: 20191120, end: 20191120
  3. INVESTIGATIONAL BIOSIMILARS [Suspect]
     Active Substance: INVESTIGATIONAL BIOSIMILARS
     Dosage: 360 MILLIGRAM, QD (EVERY ADMINISTRATION)
     Route: 041
     Dates: start: 20191218, end: 20191218
  4. INVESTIGATIONAL BIOSIMILARS [Suspect]
     Active Substance: INVESTIGATIONAL BIOSIMILARS
     Dosage: 360 MILLIGRAM, QD (EVERY ADMINISTRATION)
     Route: 041
     Dates: start: 20200115, end: 20200115
  5. INVESTIGATIONAL BIOSIMILARS [Suspect]
     Active Substance: INVESTIGATIONAL BIOSIMILARS
     Dosage: 360 MILLIGRAM, QD (EVERY ADMINISTRATION)
     Route: 041
     Dates: start: 20200212, end: 20200212
  6. OXALIPLATIN [Suspect]
     Active Substance: OXALIPLATIN
     Indication: HER2 positive gastric cancer
     Dosage: 160 MILLIGRAM, QD
     Route: 041
     Dates: start: 20191023, end: 20191023
  7. OXALIPLATIN [Suspect]
     Active Substance: OXALIPLATIN
     Dosage: 160 MILLIGRAM, QD
     Route: 041
     Dates: start: 20191120, end: 20191120
  8. OXALIPLATIN [Suspect]
     Active Substance: OXALIPLATIN
     Dosage: 160 MILLIGRAM, QD
     Route: 041
     Dates: start: 20191218, end: 20191218
  9. OXALIPLATIN [Suspect]
     Active Substance: OXALIPLATIN
     Dosage: 160 MILLIGRAM, QD
     Route: 041
     Dates: start: 20200115, end: 20200115
  10. OXALIPLATIN [Suspect]
     Active Substance: OXALIPLATIN
     Dosage: 160 MILLIGRAM, QD
     Route: 041
     Dates: start: 20200212, end: 20200212
  11. CAPECITABINE [Suspect]
     Active Substance: CAPECITABINE
     Indication: HER2 positive gastric cancer
     Dosage: 3000 MILLIGRAM, QD
     Route: 048
     Dates: start: 20191023, end: 20191028
  12. CAPECITABINE [Suspect]
     Active Substance: CAPECITABINE
     Dosage: 3000 MILLIGRAM, QD
     Route: 048
     Dates: start: 20191120, end: 20191122
  13. CAPECITABINE [Suspect]
     Active Substance: CAPECITABINE
     Dosage: 2400 MILLIGRAM, QD
     Route: 048
     Dates: start: 20191218, end: 20191225
  14. CAPECITABINE [Suspect]
     Active Substance: CAPECITABINE
     Dosage: 2400 MILLIGRAM, QD
     Route: 048
     Dates: start: 20200115, end: 20200121
  15. CAPECITABINE [Suspect]
     Active Substance: CAPECITABINE
     Dosage: 2400 MILLIGRAM, QD
     Route: 048
     Dates: start: 20200212, end: 20200219
  16. NEXIUM [Concomitant]
     Active Substance: ESOMEPRAZOLE MAGNESIUM
     Indication: Chronic gastritis
     Dosage: UNK
  17. MOSAPRIDE CITRATE DIHYDRATE [Concomitant]
     Active Substance: MOSAPRIDE CITRATE DIHYDRATE
     Indication: Chronic gastritis
     Dosage: UNK
  18. MAGNESIUM OXIDE [Concomitant]
     Active Substance: MAGNESIUM OXIDE
     Indication: Constipation
     Dosage: UNK
  19. AMINO ACIDS\DEXTROSE\ELECTROLYTES NOS\SOYBEAN OIL\VITAMINS [Concomitant]
     Active Substance: AMINO ACIDS\DEXTROSE\ELECTROLYTES NOS\SOYBEAN OIL\VITAMINS
     Indication: Decreased appetite
     Dosage: UNK
     Dates: end: 20191030
  20. CALONAL [Concomitant]
     Active Substance: ACETAMINOPHEN
     Indication: Gout
     Dosage: UNK
  21. SENNOSIDES [Concomitant]
     Active Substance: SENNOSIDES
     Indication: Constipation
     Dosage: UNK

REACTIONS (10)
  - HER2 positive gastric cancer [Fatal]
  - Urinary tract infection [Recovered/Resolved]
  - Decreased appetite [Recovered/Resolved]
  - Decreased appetite [Recovered/Resolved]
  - Decreased appetite [Recovered/Resolved]
  - Decreased appetite [Recovered/Resolved]
  - Decreased appetite [Recovered/Resolved]
  - Anaemia [Not Recovered/Not Resolved]
  - Off label use [Unknown]
  - Off label use [Unknown]

NARRATIVE: CASE EVENT DATE: 20191023
